FAERS Safety Report 10394099 (Version 5)
Quarter: 2014Q4

REPORT INFORMATION
  Report Type: Spontaneous
  Country: US (occurrence: None)
  Receive Date: 20140818
  Receipt Date: 20141110
  Transmission Date: 20150528
  Serious: Yes (Hospitalization, Other)
  Sender: FDA-Public Use
  Company Number: US-001164

PATIENT
  Age: 55 Year
  Sex: Male

DRUGS (12)
  1. CHILDRENS CHEWABLE VITAMINS [Concomitant]
  2. LANTUS [Concomitant]
     Active Substance: INSULIN GLARGINE
  3. FLAGYL [Concomitant]
     Active Substance: METRONIDAZOLE\METRONIDAZOLE HYDROCHLORIDE
  4. MIRTAZAPINE. [Concomitant]
     Active Substance: MIRTAZAPINE
  5. ANTIBIOTICS [Concomitant]
     Active Substance: UNSPECIFIED INGREDIENT
  6. LEVOTHYROXINE [Concomitant]
     Active Substance: LEVOTHYROXINE
  7. ALLOPURINOL. [Concomitant]
     Active Substance: ALLOPURINOL
  8. PHENERGAN [Concomitant]
     Active Substance: PROMETHAZINE HYDROCHLORIDE
  9. SOLUTIONS FOR PARENTERAL NUTRITION [Concomitant]
     Active Substance: AMINO ACIDS\DEXTROSE\ELECTROLYTES NOS
  10. GABAPENTIN. [Concomitant]
     Active Substance: GABAPENTIN
  11. GATTEX [Suspect]
     Active Substance: TEDUGLUTIDE\WATER
     Indication: SHORT-BOWEL SYNDROME
     Dosage: 0.31 ML QD, SUBCUTANEOUS)?
     Route: 058
     Dates: start: 20140714
  12. NORMAL SALINE [Concomitant]
     Active Substance: SODIUM CHLORIDE

REACTIONS (12)
  - Drug withdrawal syndrome [None]
  - Tooth extraction [None]
  - Malaise [None]
  - Dizziness [None]
  - Diabetes mellitus inadequate control [None]
  - Hypophagia [None]
  - Blood potassium decreased [None]
  - Pyrexia [None]
  - Nocturia [None]
  - Weight increased [None]
  - Pollakiuria [None]
  - Device related infection [None]

NARRATIVE: CASE EVENT DATE: 201407
